FAERS Safety Report 14800097 (Version 1)
Quarter: 2018Q2

REPORT INFORMATION
  Report Type: Report from Study
  Country: DE (occurrence: DE)
  Receive Date: 20180424
  Receipt Date: 20180424
  Transmission Date: 20180711
  Serious: Yes (Hospitalization, Other)
  Sender: FDA-Public Use
  Company Number: PHHY2018DE066368

PATIENT
  Sex: Female
  Weight: 58.3 kg

DRUGS (1)
  1. CANDESARTAN - 1 A PHARMA [Suspect]
     Active Substance: CANDESARTAN
     Indication: CARDIAC FAILURE CHRONIC
     Dosage: 8 MG, QD
     Route: 065
     Dates: start: 20160101

REACTIONS (7)
  - Contusion [Recovered/Resolved]
  - Forearm fracture [Recovered/Resolved]
  - Cardiac failure chronic [Recovering/Resolving]
  - Overdose [Unknown]
  - Dyspnoea [Recovering/Resolving]
  - Pain in extremity [Recovered/Resolved]
  - Fall [Recovered/Resolved]

NARRATIVE: CASE EVENT DATE: 201704
